FAERS Safety Report 4876288-X (Version None)
Quarter: 2005Q4

REPORT INFORMATION
  Report Type: 
  Country: None (occurrence: None)
  Receive Date: 20051206
  Receipt Date: 20050810
  Transmission Date: 20060501
  Serious: No
  Sender: FDA-Public Use
  Company Number: USA0508105163

PATIENT
  Age: 62 Year
  Sex: Female

DRUGS (3)
  1. CYMBALTA [Suspect]
     Indication: DEPRESSION
     Dosage: 90 MG DAY
     Dates: start: 20050501, end: 20050803
  2. FORTEO (TERIPARATIDE) [Concomitant]
  3. CALTRATE [Concomitant]

REACTIONS (3)
  - COMMUNICATION DISORDER [None]
  - CONFUSIONAL STATE [None]
  - THINKING ABNORMAL [None]
